FAERS Safety Report 8766489 (Version 5)
Quarter: 2013Q4

REPORT INFORMATION
  Report Type: Spontaneous
  Country: US (occurrence: US)
  Receive Date: 20120904
  Receipt Date: 20131022
  Transmission Date: 20140711
  Serious: Yes (Hospitalization, Other)
  Sender: FDA-Public Use
  Company Number: US-ASTRAZENECA-2012SE64513

PATIENT
  Age: 63 Year
  Sex: Female
  Weight: 92.1 kg

DRUGS (6)
  1. CRESTOR [Suspect]
     Indication: BLOOD CHOLESTEROL INCREASED
     Route: 048
  2. CRESTOR [Suspect]
     Indication: BLOOD CHOLESTEROL INCREASED
     Route: 048
  3. CRESTOR [Suspect]
     Indication: BLOOD CHOLESTEROL INCREASED
     Route: 048
     Dates: start: 2005
  4. NEXIUM [Concomitant]
     Indication: BARRETT^S OESOPHAGUS
     Route: 048
     Dates: start: 20120912
  5. PLAVIX [Concomitant]
     Indication: CARDIAC DISORDER
     Route: 048
     Dates: start: 20111218
  6. VITAMINS OTC [Concomitant]

REACTIONS (5)
  - Myocardial infarction [Unknown]
  - Neoplasm malignant [Unknown]
  - Breast cancer [Recovered/Resolved with Sequelae]
  - Nasopharyngitis [Unknown]
  - Diabetes mellitus [Unknown]
